FAERS Safety Report 6672379-1 (Version None)
Quarter: 2010Q2

REPORT INFORMATION
  Report Type: 
  Country: None (occurrence: None)
  Receive Date: 20100406
  Receipt Date: 20100325
  Transmission Date: 20101027
  Serious: Yes (Life-Threatening, Hospitalization)
  Sender: FDA-Public Use
  Company Number: DSJ-2010-01942

PATIENT
  Age: 72 Year
  Sex: Female
  Weight: 40 kg

DRUGS (7)
  1. OLMESARTAN MEDOXOMIL [Suspect]
     Indication: HYPERTENSION
     Dosage: 20 MG (20 MG, 1 IN 1 D, OTHER 10 MG (10 MG, 1 IN 1 D, OTHER)
     Dates: start: 20091227, end: 20100108
  2. OLMESARTAN MEDOXOMIL [Suspect]
     Indication: HYPERTENSION
     Dosage: 20 MG (20 MG, 1 IN 1 D, OTHER 10 MG (10 MG, 1 IN 1 D, OTHER)
     Dates: start: 20100118, end: 20100203
  3. FUROSEMIDE [Suspect]
     Indication: CARDIAC FAILURE CHRONIC
     Dosage: 20 MG (20 MG, 1 IN 1 D, OTHER)
     Dates: start: 20091205, end: 20100203
  4. FUROSEMIDE [Suspect]
     Indication: HYPERTENSION
     Dosage: 20 MG (20 MG, 1 IN 1 D, OTHER)
     Dates: start: 20091205, end: 20100203
  5. LACB F (ANTIBIOTICS-RESISTANT LACTIC ACID BACTERIAE) [Concomitant]
  6. AULENE / GLUTAMINE [Concomitant]
  7. VITAMEDIN (PRIDOXINE HYDROCHLORIDE, CYANOCOBALAMIN, BENFOTIAMINE) [Concomitant]

REACTIONS (13)
  - ASCITES [None]
  - BLOOD UREA INCREASED [None]
  - BODY TEMPERATURE DECREASED [None]
  - DEHYDRATION [None]
  - DEVICE RELATED INFECTION [None]
  - DIARRHOEA [None]
  - DYSPHAGIA [None]
  - FEELING ABNORMAL [None]
  - HAEMOGLOBIN DECREASED [None]
  - HYPERTENSION [None]
  - NEUROGENIC SHOCK [None]
  - RED BLOOD CELL COUNT DECREASED [None]
  - SOMNOLENCE [None]
